FAERS Safety Report 25223797 (Version 1)
Quarter: 2025Q2

REPORT INFORMATION
  Report Type: Spontaneous
  Country: LB (occurrence: LB)
  Receive Date: 20250422
  Receipt Date: 20250422
  Transmission Date: 20250716
  Serious: Yes (Other)
  Sender: RANBAXY
  Company Number: LB-SUN PHARMACEUTICAL INDUSTRIES LTD-2025R1-499531

PATIENT
  Age: 36 Year
  Sex: Female

DRUGS (4)
  1. ITRACONAZOLE [Suspect]
     Active Substance: ITRACONAZOLE
     Indication: Tinea versicolour
     Dosage: 200 MILLIGRAM, DAILY
     Route: 048
  2. MICONAZOLE [Suspect]
     Active Substance: MICONAZOLE
     Indication: Tinea versicolour
     Route: 061
  3. CICLOPIROX [Suspect]
     Active Substance: CICLOPIROX
     Indication: Tinea versicolour
     Route: 061
  4. FLUCONAZOLE [Suspect]
     Active Substance: FLUCONAZOLE
     Indication: Tinea versicolour
     Dosage: 300 MILLIGRAM, WEEKLY
     Route: 048

REACTIONS (2)
  - Drug resistance [Unknown]
  - Drug ineffective [Unknown]
